FAERS Safety Report 17143137 (Version 5)
Quarter: 2020Q2

REPORT INFORMATION
  Report Type: Report from Study
  Country: None (occurrence: US)
  Receive Date: 20191212
  Receipt Date: 20200409
  Transmission Date: 20200713
  Serious: Yes (Other)
  Sender: FDA-Public Use
  Company Number: US-ABBVIE-19K-163-3145070-00

PATIENT
  Age: 60 Year
  Sex: Male
  Weight: 67 kg

DRUGS (26)
  1. IMBRUVICA [Suspect]
     Active Substance: IBRUTINIB
     Dosage: 560 MG, QD
     Route: 048
     Dates: start: 20191124
  2. IMBRUVICA [Suspect]
     Active Substance: IBRUTINIB
     Route: 048
     Dates: start: 201912
  3. LOVASTATIN. [Concomitant]
     Active Substance: LOVASTATIN
     Indication: PRODUCT USED FOR UNKNOWN INDICATION
  4. SPIRONOLACTONE. [Concomitant]
     Active Substance: SPIRONOLACTONE
     Indication: PRODUCT USED FOR UNKNOWN INDICATION
  5. GRALISE [Concomitant]
     Active Substance: GABAPENTIN
     Indication: PRODUCT USED FOR UNKNOWN INDICATION
  6. PROTONIX                           /00661201/ [Concomitant]
     Active Substance: OMEPRAZOLE
     Indication: PRODUCT USED FOR UNKNOWN INDICATION
  7. CLONIDINE. [Concomitant]
     Active Substance: CLONIDINE
     Indication: PRODUCT USED FOR UNKNOWN INDICATION
  8. IMBRUVICA [Suspect]
     Active Substance: IBRUTINIB
     Route: 048
     Dates: start: 2019
  9. BENADRYL [Suspect]
     Active Substance: DIPHENHYDRAMINE HYDROCHLORIDE
     Indication: PRODUCT USED FOR UNKNOWN INDICATION
     Route: 065
  10. KEPPRA [Concomitant]
     Active Substance: LEVETIRACETAM
     Indication: SEIZURE
     Dosage: UNK
  11. OXYCONTIN [Concomitant]
     Active Substance: OXYCODONE HYDROCHLORIDE
     Indication: PRODUCT USED FOR UNKNOWN INDICATION
  12. MORPHINE SULFATE. [Concomitant]
     Active Substance: MORPHINE SULFATE
     Indication: PAIN
     Dosage: 15 MG, UNK
  13. COREG [Concomitant]
     Active Substance: CARVEDILOL
     Indication: BLOOD PRESSURE MEASUREMENT
     Dosage: UNK
  14. IMBRUVICA [Suspect]
     Active Substance: IBRUTINIB
     Indication: WALDENSTROM^S MACROGLOBULINAEMIA
     Dosage: 560 MG, QD
     Route: 048
     Dates: start: 20190226, end: 20191123
  15. METHADONE HCL [Concomitant]
     Active Substance: METHADONE HYDROCHLORIDE
     Indication: ABDOMINAL PAIN
     Dosage: 5 MG, UNK
  16. MELATONIN [Concomitant]
     Active Substance: MELATONIN
     Indication: PRODUCT USED FOR UNKNOWN INDICATION
  17. IMBRUVICA [Suspect]
     Active Substance: IBRUTINIB
     Indication: B-CELL LYMPHOMA
     Dosage: 560 MG, QD
     Route: 048
     Dates: start: 2019
  18. DICYCLOMINE HCL [Concomitant]
     Active Substance: DICYCLOMINE HYDROCHLORIDE
     Indication: PRODUCT USED FOR UNKNOWN INDICATION
  19. IMBRUVICA [Suspect]
     Active Substance: IBRUTINIB
     Indication: NON-HODGKIN^S LYMPHOMA
     Dosage: 560 MG, QD
     Route: 048
     Dates: start: 20190227
  20. VITAMIN D [Concomitant]
     Active Substance: VITAMIN D NOS
     Indication: PRODUCT USED FOR UNKNOWN INDICATION
  21. KLONOPIN [Concomitant]
     Active Substance: CLONAZEPAM
     Indication: PRODUCT USED FOR UNKNOWN INDICATION
  22. CARBATROL [Concomitant]
     Active Substance: CARBAMAZEPINE
     Indication: PRODUCT USED FOR UNKNOWN INDICATION
  23. TOPAMAX [Concomitant]
     Active Substance: TOPIRAMATE
     Indication: SEIZURE
     Dosage: UNK
  24. LORTAB [Concomitant]
     Active Substance: ACETAMINOPHEN\HYDROCODONE BITARTRATE
     Indication: BREAKTHROUGH PAIN
     Dosage: 0.03 MG, 10/325
  25. HYDROCODONE [Concomitant]
     Active Substance: HYDROCODONE
     Indication: PRODUCT USED FOR UNKNOWN INDICATION
  26. DILANTIN [Concomitant]
     Active Substance: PHENYTOIN
     Indication: BREAKTHROUGH PAIN

REACTIONS (33)
  - Malignant neoplasm progression [Unknown]
  - Memory impairment [Not Recovered/Not Resolved]
  - Emotional disorder [Unknown]
  - Seizure [Recovered/Resolved]
  - Abnormal behaviour [Unknown]
  - Contusion [Unknown]
  - Mouth ulceration [Not Recovered/Not Resolved]
  - Generalised tonic-clonic seizure [Recovered/Resolved]
  - Product dose omission [Unknown]
  - Rhinorrhoea [Not Recovered/Not Resolved]
  - Somnolence [Unknown]
  - Gait disturbance [Not Recovered/Not Resolved]
  - White blood cell count decreased [Recovered/Resolved]
  - Loss of consciousness [Not Recovered/Not Resolved]
  - Stress [Not Recovered/Not Resolved]
  - Wound [Unknown]
  - Insomnia [Recovering/Resolving]
  - Rash [Not Recovered/Not Resolved]
  - Vomiting [Unknown]
  - Hernia [Unknown]
  - Weight decreased [Recovering/Resolving]
  - Blood count abnormal [Recovered/Resolved]
  - Cognitive disorder [Not Recovered/Not Resolved]
  - Appetite disorder [Recovering/Resolving]
  - Cough [Recovered/Resolved]
  - Spider vein [Unknown]
  - Skin discolouration [Unknown]
  - Adverse event [Not Recovered/Not Resolved]
  - Urine amphetamine positive [Unknown]
  - Musculoskeletal pain [Unknown]
  - Increased tendency to bruise [Not Recovered/Not Resolved]
  - Stomatitis [Unknown]
  - Hypersensitivity [Not Recovered/Not Resolved]

NARRATIVE: CASE EVENT DATE: 201902
